FAERS Safety Report 24144468 (Version 3)
Quarter: 2024Q3

REPORT INFORMATION
  Report Type: Spontaneous
  Country: US (occurrence: US)
  Receive Date: 20240728
  Receipt Date: 20240827
  Transmission Date: 20241017
  Serious: Yes (Other)
  Sender: MERCK
  Company Number: US-009507513-2407USA011951

PATIENT
  Age: 38 Year
  Sex: Female
  Weight: 250 kg

DRUGS (3)
  1. KEYTRUDA [Suspect]
     Active Substance: PEMBROLIZUMAB
     Indication: Breast cancer
     Dosage: 200 MILLIGRAM, Q3W(ALSO REPORTED AS ONCE MONTHLY)
     Route: 042
     Dates: start: 20210819, end: 202208
  2. CARBOPLATIN [Concomitant]
     Active Substance: CARBOPLATIN
     Indication: Breast cancer
     Dosage: 300 MILLIGRAM
     Route: 042
     Dates: start: 20210819, end: 20211111
  3. TAXOL [Concomitant]
     Active Substance: PACLITAXEL
     Indication: Breast cancer
     Dosage: 192 MILLIGRAM
     Route: 042
     Dates: start: 20210819, end: 20211111

REACTIONS (14)
  - Adrenal insufficiency [Not Recovered/Not Resolved]
  - Tremor [Unknown]
  - Blood glucose increased [Unknown]
  - Dizziness [Unknown]
  - Pain in extremity [Not Recovered/Not Resolved]
  - Brain fog [Not Recovered/Not Resolved]
  - Head discomfort [Recovered/Resolved]
  - Arthralgia [Unknown]
  - Feeling abnormal [Not Recovered/Not Resolved]
  - Fatigue [Not Recovered/Not Resolved]
  - Dyspnoea [Unknown]
  - Cortisol decreased [Unknown]
  - Heart rate increased [Not Recovered/Not Resolved]
  - Inappropriate schedule of product administration [Unknown]

NARRATIVE: CASE EVENT DATE: 20210920
